FAERS Safety Report 6250408-7 (Version None)
Quarter: 2009Q2

REPORT INFORMATION
  Report Type: 
  Country: None (occurrence: None)
  Receive Date: 20090630
  Receipt Date: 20090624
  Transmission Date: 20091009
  Serious: Yes (Hospitalization)
  Sender: FDA-Public Use
  Company Number: GB-ASTRAZENECA-2009SE03266

PATIENT
  Sex: Male

DRUGS (1)
  1. MERONEM [Suspect]
     Route: 042
     Dates: start: 20090620

REACTIONS (1)
  - CELLULITIS [None]
